FAERS Safety Report 8249849-8 (Version None)
Quarter: 2012Q2

REPORT INFORMATION
  Report Type: 
  Country: None (occurrence: None)
  Receive Date: 20120402
  Receipt Date: 20120327
  Transmission Date: 20120825
  Serious: Yes (Other)
  Sender: FDA-Public Use
  Company Number: PHHY2011US22449

PATIENT
  Sex: Male
  Weight: 140.59 kg

DRUGS (12)
  1. METFORMIN HCL [Concomitant]
  2. ZESTRIL [Concomitant]
  3. GLUCOPHAGE [Concomitant]
  4. LISINOPRIL [Concomitant]
  5. MOBIC [Concomitant]
  6. LYRICA [Concomitant]
  7. ULTRAM [Concomitant]
  8. ATIVAN [Concomitant]
  9. POTASSIUM [Concomitant]
  10. TRAMADOL HCL [Concomitant]
  11. TRAZODONE HCL [Concomitant]
  12. EXTAVIA [Suspect]
     Indication: MULTIPLE SCLEROSIS
     Dosage: 0.062 MG, QOD
     Route: 058

REACTIONS (19)
  - ALANINE AMINOTRANSFERASE INCREASED [None]
  - ABDOMINAL DISCOMFORT [None]
  - PAIN [None]
  - INFLUENZA LIKE ILLNESS [None]
  - FATIGUE [None]
  - ASPARTATE AMINOTRANSFERASE INCREASED [None]
  - DEPRESSION [None]
  - FEELING COLD [None]
  - LIGAMENT SPRAIN [None]
  - STRESS [None]
  - FEELING ABNORMAL [None]
  - HEADACHE [None]
  - PYREXIA [None]
  - ASTHENIA [None]
  - EAR INFECTION [None]
  - BLOOD THYROID STIMULATING HORMONE INCREASED [None]
  - MUSCLE SPASMS [None]
  - CHILLS [None]
  - GASTROOESOPHAGEAL REFLUX DISEASE [None]
